FAERS Safety Report 16073474 (Version 4)
Quarter: 2019Q2

REPORT INFORMATION
  Report Type: Spontaneous
  Country: FR (occurrence: FR)
  Receive Date: 20190314
  Receipt Date: 20190603
  Transmission Date: 20190711
  Serious: Yes (Hospitalization, Other)
  Sender: FDA-Public Use
  Company Number: FR-MYLANLABS-2019M1022783

PATIENT
  Age: 23 Year
  Sex: Male
  Weight: 49 kg

DRUGS (17)
  1. SOLU-MEDROL [Suspect]
     Active Substance: METHYLPREDNISOLONE SODIUM SUCCINATE
     Indication: CROHN^S DISEASE
     Dosage: 60 MILLIGRAM
     Route: 048
     Dates: start: 20080811
  2. TIENAM [Suspect]
     Active Substance: CILASTATIN SODIUM\IMIPENEM
     Indication: ABSCESS
     Dosage: UNK
     Route: 042
     Dates: start: 20081222, end: 20090112
  3. VANCOMYCIN [Suspect]
     Active Substance: VANCOMYCIN
     Indication: ABSCESS
     Dosage: 32 GRAM
     Route: 042
     Dates: start: 20081220, end: 20090112
  4. SOLU-MEDROL [Suspect]
     Active Substance: METHYLPREDNISOLONE SODIUM SUCCINATE
     Indication: CROHN^S DISEASE
     Dosage: 100 MILLIGRAM
     Route: 042
     Dates: start: 20090120
  5. TRIFLUCAN [Suspect]
     Active Substance: FLUCONAZOLE
     Indication: RASH
     Dosage: 200 MILLIGRAM, QD, UNK, ? PARTIR DU 19 JANVIER 200 MG/JOUR
     Route: 048
     Dates: start: 20090119, end: 20090130
  6. TRIFLUCAN [Suspect]
     Active Substance: FLUCONAZOLE
     Dosage: 200 MILLIGRAM, BID
     Route: 048
     Dates: start: 20090106, end: 20090130
  7. AERIUS (DESLORATADINE) [Suspect]
     Active Substance: DESLORATADINE
     Indication: RASH
     Dosage: 1 DOSAGE FORM, QD
     Route: 048
     Dates: start: 20090107
  8. CACIT                              /00944201/ [Suspect]
     Active Substance: CALCIUM CARBONATE\CHOLECALCIFEROL
     Indication: PRODUCT USED FOR UNKNOWN INDICATION
     Dosage: 1 DOSAGE FORM, QD
     Route: 048
     Dates: start: 20081227
  9. EBASTINE [Suspect]
     Active Substance: EBASTINE
     Indication: RASH
     Dosage: UNK
     Route: 048
     Dates: start: 20090107
  10. VANCOMYCIN [Suspect]
     Active Substance: VANCOMYCIN
     Dosage: 2 GRAM, QD
     Route: 042
     Dates: start: 20081222, end: 20090112
  11. SPECIAFOLDINE [Suspect]
     Active Substance: FOLIC ACID
     Indication: PRODUCT USED FOR UNKNOWN INDICATION
     Dosage: 3 DOSAGE FORM, QD
     Route: 048
     Dates: start: 20081223
  12. PEVARYL                            /00418501/ [Suspect]
     Active Substance: ECONAZOLE NITRATE
     Indication: RASH
     Dosage: 2 DOSAGE FORM
     Route: 061
     Dates: start: 20090114
  13. TRANXENE [Suspect]
     Active Substance: CLORAZEPATE DIPOTASSIUM
     Indication: ANXIETY
     Dosage: 1 DOSAGE FORM, QD
     Route: 042
     Dates: start: 20081222, end: 20090123
  14. REMICADE [Suspect]
     Active Substance: INFLIXIMAB
     Indication: CROHN^S DISEASE
     Dosage: 100 MILLIGRAM
     Route: 042
     Dates: start: 20090120
  15. LOVENOX [Suspect]
     Active Substance: ENOXAPARIN SODIUM
     Indication: PRODUCT USED FOR UNKNOWN INDICATION
     Dosage: 1 DOSAGE FORM, QD
     Route: 058
     Dates: start: 20081224
  16. TRIFLUCAN [Suspect]
     Active Substance: FLUCONAZOLE
     Dosage: 100 MILLIGRAM, QD
     Route: 048
     Dates: start: 20090106, end: 20090118
  17. PEVARYL                            /00418501/ [Suspect]
     Active Substance: ECONAZOLE NITRATE
     Dosage: UNK
     Route: 061

REACTIONS (1)
  - Hepatitis [Recovering/Resolving]

NARRATIVE: CASE EVENT DATE: 20090106
